FAERS Safety Report 24763561 (Version 2)
Quarter: 2024Q4

REPORT INFORMATION
  Report Type: Spontaneous
  Country: US (occurrence: US)
  Receive Date: 20241223
  Receipt Date: 20241226
  Transmission Date: 20250115
  Serious: No
  Sender: SANOFI AVENTIS
  Company Number: US-SA-2024SA377018

PATIENT
  Sex: Female
  Weight: 88.64 kg

DRUGS (17)
  1. DUPIXENT [Suspect]
     Active Substance: DUPILUMAB
     Indication: Dermatitis atopic
     Dosage: 300 MG, QOW
     Route: 058
     Dates: start: 202109
  2. AMOXICILLIN\CLAVULANATE POTASSIUM [Concomitant]
     Active Substance: AMOXICILLIN\CLAVULANATE POTASSIUM
  3. BROMPHENIRAMINE\PSEUDOEPHEDRINE [Concomitant]
     Active Substance: BROMPHENIRAMINE\PSEUDOEPHEDRINE
  4. ZORYVE [Concomitant]
     Active Substance: ROFLUMILAST
  5. TACROLIMUS [Concomitant]
     Active Substance: TACROLIMUS
  6. BENZONATATE [Concomitant]
     Active Substance: BENZONATATE
  7. FLUTICASONE PROPIONATE [Concomitant]
     Active Substance: FLUTICASONE PROPIONATE
  8. LEVOTHYROXINE SODIUM [Concomitant]
     Active Substance: LEVOTHYROXINE SODIUM
  9. SPIKEVAX [Concomitant]
     Active Substance: CX-046684
  10. ENBREL [Concomitant]
     Active Substance: ETANERCEPT
  11. FLUOCINONIDE [Concomitant]
     Active Substance: FLUOCINONIDE
  12. ONDANSETRON [Concomitant]
     Active Substance: ONDANSETRON
  13. IBUPROFEN [Concomitant]
     Active Substance: IBUPROFEN
  14. MOUNJARO [Concomitant]
     Active Substance: TIRZEPATIDE
  15. AMLODIPINE BESYLATE [Concomitant]
     Active Substance: AMLODIPINE BESYLATE
  16. OZEMPIC [Concomitant]
     Active Substance: SEMAGLUTIDE
  17. TRIAMCINOLONE ACETONIDE [Concomitant]
     Active Substance: TRIAMCINOLONE ACETONIDE

REACTIONS (4)
  - Skin disorder [Unknown]
  - Pruritus [Unknown]
  - Dry skin [Unknown]
  - Sleep disorder due to a general medical condition [Unknown]
